FAERS Safety Report 9207486 (Version 1)
Quarter: 2013Q2

REPORT INFORMATION
  Report Type: Spontaneous
  Country: US (occurrence: US)
  Receive Date: 20130403
  Receipt Date: 20130403
  Transmission Date: 20140414
  Serious: Yes (Other)
  Sender: FDA-Public Use
  Company Number: US-ROCHE-1205890

PATIENT
  Sex: Female

DRUGS (17)
  1. VALIUM [Suspect]
     Indication: PRODUCT USED FOR UNKNOWN INDICATION
     Route: 065
  2. LYRICA [Concomitant]
     Route: 065
  3. OMEPRAZOLE [Concomitant]
     Route: 065
  4. MOBIC [Concomitant]
     Route: 065
  5. PRAVASTATIN [Concomitant]
     Route: 065
  6. LEVOTHYROXINE [Concomitant]
     Route: 065
  7. CELEXA [Concomitant]
     Route: 065
  8. DEPAKOTE [Concomitant]
     Route: 065
  9. LISINOPRIL [Concomitant]
     Route: 065
  10. HCTZ [Concomitant]
     Route: 065
  11. NORCO [Concomitant]
     Dosage: 10/325 MG
     Route: 065
  12. IMITREX [Concomitant]
     Route: 065
  13. LETROZOLE [Concomitant]
     Route: 065
  14. TETRACYCLINE [Concomitant]
  15. FENTANYL [Concomitant]
  16. MORPHINE [Concomitant]
  17. ERYTHROMYCIN [Concomitant]

REACTIONS (15)
  - Blood cholesterol increased [Unknown]
  - Thyroid disorder [Unknown]
  - Depression [Unknown]
  - Migraine [Unknown]
  - Blood pressure increased [Unknown]
  - Pain [Unknown]
  - Breast cancer [Unknown]
  - Dyspnoea [Unknown]
  - Urinary tract infection [Unknown]
  - Urticaria [Unknown]
  - Psychomotor hyperactivity [Unknown]
  - Urticaria [Unknown]
  - Vomiting [Unknown]
  - Pruritus [Unknown]
  - Migraine [Unknown]
